FAERS Safety Report 20872697 (Version 1)
Quarter: 2022Q2

REPORT INFORMATION
  Report Type: Spontaneous
  Country: CN (occurrence: CN)
  Receive Date: 20220525
  Receipt Date: 20220525
  Transmission Date: 20220721
  Serious: Yes (Hospitalization, Other)
  Sender: FDA-Public Use
  Company Number: CN-ELI_LILLY_AND_COMPANY-CN202205005653

PATIENT
  Age: 19 Year
  Sex: Male
  Weight: 79 kg

DRUGS (1)
  1. OLANZAPINE [Suspect]
     Active Substance: OLANZAPINE
     Indication: Hallucination, auditory
     Dosage: 2.5 MG, DAILY
     Route: 048
     Dates: start: 20211215, end: 20220414

REACTIONS (2)
  - Hallucination, auditory [Unknown]
  - Weight increased [Unknown]

NARRATIVE: CASE EVENT DATE: 20220414
